FAERS Safety Report 8837070 (Version 1)
Quarter: 2012Q4

REPORT INFORMATION
  Report Type: Spontaneous
  Country: US (occurrence: None)
  Receive Date: 20121011
  Receipt Date: 20121011
  Transmission Date: 20130627
  Serious: Yes (Life-Threatening, Hospitalization, Disabling, Other)
  Sender: FDA-Public Use
  Company Number: None

PATIENT
  Age: 56 Year
  Sex: Male
  Weight: 85.73 kg

DRUGS (1)
  1. ESZOPICLONE [Suspect]
     Dosage: 1nightly for sleep 1 po
     Route: 048
     Dates: start: 20080701, end: 20121010

REACTIONS (1)
  - Insomnia [None]
